FAERS Safety Report 24136457 (Version 2)
Quarter: 2024Q3

REPORT INFORMATION
  Report Type: Spontaneous
  Country: GB (occurrence: None)
  Receive Date: 20240725
  Receipt Date: 20240904
  Transmission Date: 20241017
  Serious: Yes (Hospitalization, Disabling)
  Sender: ASTRAZENECA
  Company Number: 2024A160658

PATIENT
  Sex: Female

DRUGS (1)
  1. SYMBICORT [Suspect]
     Active Substance: BUDESONIDE\FORMOTEROL FUMARATE DIHYDRATE
     Dosage: 400/12 INHALER,UNKNOWN UNKNOWN
     Route: 055

REACTIONS (3)
  - General physical health deterioration [Unknown]
  - Dyspnoea [Recovered/Resolved]
  - Device malfunction [Unknown]
